FAERS Safety Report 7537051-4 (Version None)
Quarter: 2011Q2

REPORT INFORMATION
  Report Type: 
  Country: None (occurrence: None)
  Receive Date: 20110609
  Receipt Date: 20110526
  Transmission Date: 20111010
  Serious: Yes (Other)
  Sender: FDA-Public Use
  Company Number: PHHY2011US30338

PATIENT
  Sex: Male
  Weight: 62 kg

DRUGS (6)
  1. EXJADE [Suspect]
     Indication: MYELOFIBROSIS
     Dosage: 500 MG, DAILY
     Route: 048
     Dates: start: 20101101, end: 20110301
  2. TEMAZEPAM [Concomitant]
  3. OMEPRAZOLE [Concomitant]
  4. ALLOPURINOL [Concomitant]
  5. ALBUTEROL SULFATE AUTOHALER [Concomitant]
  6. ANDRODERM [Concomitant]

REACTIONS (2)
  - THROMBOCYTOSIS [None]
  - PLATELET COUNT DECREASED [None]
